FAERS Safety Report 16129475 (Version 1)
Quarter: 2019Q1

REPORT INFORMATION
  Report Type: Spontaneous
  Country: ZA (occurrence: ZA)
  Receive Date: 20190328
  Receipt Date: 20190328
  Transmission Date: 20190418
  Serious: Yes (Other)
  Sender: FDA-Public Use
  Company Number: PHHY2019ZA065374

PATIENT
  Age: 34 Year
  Sex: Male

DRUGS (1)
  1. AMOXICILLIN+CLAVULANIC ACID [Suspect]
     Active Substance: AMOXICILLIN\CLAVULANIC ACID
     Indication: SUBCUTANEOUS ABSCESS
     Route: 065

REACTIONS (2)
  - Cutaneous tuberculosis [Unknown]
  - Subcutaneous abscess [Unknown]
